FAERS Safety Report 8718467 (Version 2)
Quarter: 2015Q2

REPORT INFORMATION
  Report Type: Report from Study
  Country: US (occurrence: US)
  Receive Date: 20120810
  Receipt Date: 20150629
  Transmission Date: 20150821
  Serious: Yes (Hospitalization, Other)
  Sender: FDA-Public Use
  Company Number: US-ROCHE-1098792

PATIENT
  Sex: Female

DRUGS (10)
  1. ACTIVASE [Suspect]
     Active Substance: ALTEPLASE
     Indication: ACUTE MYOCARDIAL INFARCTION
     Route: 065
     Dates: start: 19900806
  2. NITROGLYCERIN. [Concomitant]
     Active Substance: NITROGLYCERIN
     Indication: CHEST PAIN
  3. ISOSORBIDE DINITRATE. [Concomitant]
     Active Substance: ISOSORBIDE DINITRATE
     Route: 065
  4. COUMADIN [Concomitant]
     Active Substance: WARFARIN SODIUM
     Route: 048
  5. LANOXIN [Concomitant]
     Active Substance: DIGOXIN
     Route: 065
  6. TENORMIN [Concomitant]
     Active Substance: ATENOLOL
     Route: 065
  7. ATROPINE [Concomitant]
     Active Substance: ATROPINE
     Route: 042
  8. HEPARIN [Concomitant]
     Active Substance: HEPARIN SODIUM
     Route: 042
  9. DIGITALIS [Concomitant]
     Active Substance: DIGITALIS
  10. LASIX [Concomitant]
     Active Substance: FUROSEMIDE
     Dosage: 20MG AM DAILY
     Route: 065

REACTIONS (4)
  - Atrial fibrillation [Unknown]
  - Anaemia [Unknown]
  - Cardiac failure congestive [Unknown]
  - Wound infection [Unknown]
